FAERS Safety Report 5186718-4 (Version None)
Quarter: 2006Q4

REPORT INFORMATION
  Report Type: 
  Country: None (occurrence: None)
  Receive Date: 20061212
  Receipt Date: 20061129
  Transmission Date: 20070319
  Serious: Yes (Other)
  Sender: FDA-Public Use
  Company Number: 2006BH014778

PATIENT
  Age: 30 Year
  Sex: Female

DRUGS (5)
  1. IGIV, UNSPECIFIED PRODUCT [Suspect]
     Indication: ASTHENIA
     Dosage: 2 MG/KG;IV
     Route: 042
  2. IGIV, UNSPECIFIED PRODUCT [Suspect]
     Indication: FACIAL PALSY
     Dosage: 2 MG/KG;IV
     Route: 042
  3. IGIV, UNSPECIFIED PRODUCT [Suspect]
     Indication: OFF LABEL USE
     Dosage: 2 MG/KG;IV
     Route: 042
  4. IGIV, UNSPECIFIED PRODUCT [Suspect]
     Indication: PARAESTHESIA
     Dosage: 2 MG/KG;IV
     Route: 042
  5. PREDNISONE TAB [Concomitant]

REACTIONS (5)
  - LYMPHOCYTOSIS [None]
  - PURPURA [None]
  - RASH PAPULAR [None]
  - THROMBOSIS [None]
  - VASCULITIS [None]
